FAERS Safety Report 8568127-0 (Version None)
Quarter: 2012Q3

REPORT INFORMATION
  Report Type: 
  Country: None (occurrence: None)
  Receive Date: 20120803
  Receipt Date: 20120709
  Transmission Date: 20120928
  Serious: No
  Sender: FDA-Public Use
  Company Number: US-ABBOTT-12P-163-0954152-00

PATIENT
  Sex: Male
  Weight: 89.892 kg

DRUGS (6)
  1. NIASPAN [Suspect]
     Indication: LOW DENSITY LIPOPROTEIN INCREASED
  2. NIASPAN [Suspect]
     Indication: HIGH DENSITY LIPOPROTEIN DECREASED
     Dosage: 2X500MG IN AM AND 2X500MG AT BEDTIME
     Dates: start: 20110101
  3. ASPIRIN [Concomitant]
     Indication: PRODUCT USED FOR UNKNOWN INDICATION
     Dosage: 30 MINUTES BEFORE AM DOSE OF NIASPAN AND ADDITIONAL ASA AS NEEDED
  4. LIPITOR [Concomitant]
     Indication: PRODUCT USED FOR UNKNOWN INDICATION
  5. NIASPAN [Suspect]
     Indication: BLOOD TRIGLYCERIDES INCREASED
  6. HYDROCODONE BITARTRATE [Concomitant]
     Indication: BACK PAIN
     Dosage: AS REQUIRED

REACTIONS (3)
  - PRURITUS [None]
  - FLUSHING [None]
  - SKIN BURNING SENSATION [None]
